FAERS Safety Report 6263877-3 (Version None)
Quarter: 2009Q3

REPORT INFORMATION
  Report Type: 
  Country: None (occurrence: None)
  Receive Date: 20090710
  Receipt Date: 20090609
  Transmission Date: 20100115
  Serious: No
  Sender: FDA-Public Use
  Company Number: US-BAYER-200923046NA

PATIENT
  Age: 32 Year
  Sex: Female

DRUGS (1)
  1. MIRENA [Suspect]
     Indication: CONTRACEPTION
     Route: 015
     Dates: start: 20081015

REACTIONS (6)
  - ABDOMINAL DISTENSION [None]
  - ANXIETY [None]
  - BACK PAIN [None]
  - FEELING ABNORMAL [None]
  - PAIN IN JAW [None]
  - WEIGHT INCREASED [None]
